FAERS Safety Report 8807935 (Version 1)
Quarter: 2012Q4

REPORT INFORMATION
  Report Type: Report from Study
  Country: DE (occurrence: DE)
  Receive Date: 20120925
  Receipt Date: 20120925
  Transmission Date: 20130627
  Serious: Yes (Other)
  Sender: FDA-Public Use
  Company Number: DE-JNJFOC-20120908946

PATIENT

DRUGS (2)
  1. FENTANYL [Suspect]
     Indication: BACK PAIN
     Route: 062
  2. PALLADON [Concomitant]
     Indication: BREAKTHROUGH PAIN
     Route: 065

REACTIONS (6)
  - Depression [Unknown]
  - Intentional drug misuse [Unknown]
  - Feeling abnormal [Unknown]
  - Aggression [Unknown]
  - Confusional state [Unknown]
  - Incorrect route of drug administration [Unknown]
